FAERS Safety Report 15382446 (Version 2)
Quarter: 2018Q4

REPORT INFORMATION
  Report Type: Spontaneous
  Country: US (occurrence: US)
  Receive Date: 20180913
  Receipt Date: 20181008
  Transmission Date: 20190204
  Serious: Yes (Death, Other)
  Sender: FDA-Public Use
  Company Number: US-ASTELLAS-2018US012954

PATIENT
  Age: 84 Year
  Sex: Male

DRUGS (1)
  1. XTANDI [Suspect]
     Active Substance: ENZALUTAMIDE
     Indication: PROSTATE CANCER
     Dosage: 160 MG, ONCE DAILY (4 CAPSULES DAILY)
     Route: 065

REACTIONS (5)
  - Back pain [Unknown]
  - Death [Fatal]
  - Ankle fracture [Unknown]
  - Fall [Unknown]
  - Hot flush [Unknown]

NARRATIVE: CASE EVENT DATE: 201803
